FAERS Safety Report 6293097-8 (Version None)
Quarter: 2009Q3

REPORT INFORMATION
  Report Type: 
  Country: None (occurrence: None)
  Receive Date: 20090721
  Receipt Date: 20090707
  Transmission Date: 20100115
  Serious: Yes (Hospitalization)
  Sender: FDA-Public Use
  Company Number: THYM-1001096

PATIENT
  Age: 64 Year
  Sex: Female
  Weight: 55 kg

DRUGS (4)
  1. THYMOGLOBULIN [Suspect]
     Indication: APLASTIC ANAEMIA
     Dosage: 200 MG, INTRAVENOUS
     Route: 042
     Dates: start: 20090706, end: 20090707
  2. METHYLPREDNISOLONE [Concomitant]
  3. CYCLOSPORINE [Concomitant]
  4. DICLOFENAC SODIUM [Concomitant]

REACTIONS (4)
  - LYMPHOCYTE COUNT DECREASED [None]
  - MALLORY-WEISS SYNDROME [None]
  - PYREXIA [None]
  - WHITE BLOOD CELL COUNT DECREASED [None]
